FAERS Safety Report 13682369 (Version 1)
Quarter: 2017Q2

REPORT INFORMATION
  Report Type: Report from Study
  Country: CA (occurrence: CA)
  Receive Date: 20170623
  Receipt Date: 20170623
  Transmission Date: 20170830
  Serious: Yes (Other)
  Sender: FDA-Public Use
  Company Number: CA-JNJFOC-20170606121

PATIENT
  Age: 29 Year
  Sex: Female

DRUGS (3)
  1. STELARA [Suspect]
     Active Substance: USTEKINUMAB
     Indication: PSORIASIS
     Route: 058
     Dates: start: 20150815
  2. TUSSIONEX PENNKINETIC [Concomitant]
     Active Substance: CHLORPHENIRAMINE\HYDROCODONE
     Route: 065
  3. DOXYCYCLINE. [Concomitant]
     Active Substance: DOXYCYCLINE
     Route: 065

REACTIONS (2)
  - Upper respiratory tract infection [Not Recovered/Not Resolved]
  - Lower respiratory tract infection [Not Recovered/Not Resolved]

NARRATIVE: CASE EVENT DATE: 201705
